FAERS Safety Report 6392558-0 (Version None)
Quarter: 2009Q4

REPORT INFORMATION
  Report Type: 
  Country: None (occurrence: None)
  Receive Date: 20091007
  Receipt Date: 20091002
  Transmission Date: 20100525
  Serious: Yes (Hospitalization)
  Sender: FDA-Public Use
  Company Number: US-GILEAD-2009-0024277

PATIENT
  Sex: Female
  Weight: 54.48 kg

DRUGS (8)
  1. LETAIRIS [Suspect]
     Indication: PULMONARY ARTERIAL HYPERTENSION
     Route: 048
     Dates: start: 20070815
  2. REVATIO [Concomitant]
  3. OXYGEN [Concomitant]
  4. PROCARDIA [Concomitant]
  5. LANOXIN [Concomitant]
  6. SPIRONOLACTONE [Concomitant]
  7. PLAQUENIL [Concomitant]
  8. PREDNISONE [Concomitant]

REACTIONS (1)
  - PLATELET COUNT DECREASED [None]
